FAERS Safety Report 4980370-6 (Version None)
Quarter: 2006Q2

REPORT INFORMATION
  Report Type: 
  Country: None (occurrence: None)
  Receive Date: 20060424
  Receipt Date: 20060419
  Transmission Date: 20061013
  Serious: Yes (Other)
  Sender: FDA-Public Use
  Company Number: DE-AVENTIS-200611127DE

PATIENT
  Age: 45 Year
  Sex: Female

DRUGS (2)
  1. KETEK [Suspect]
     Indication: DRUG USE FOR UNKNOWN INDICATION
     Route: 048
     Dates: start: 20060104, end: 20060111
  2. THYRONAJOD [Concomitant]

REACTIONS (2)
  - AGEUSIA [None]
  - ANOSMIA [None]
